FAERS Safety Report 7722151-6 (Version None)
Quarter: 2011Q3

REPORT INFORMATION
  Report Type: 
  Country: None (occurrence: None)
  Receive Date: 20110831
  Receipt Date: 20110828
  Transmission Date: 20111222
  Serious: Yes (Death, Hospitalization)
  Sender: FDA-Public Use
  Company Number: CA-GENZYME-CAMP-1001813

PATIENT
  Sex: Male
  Weight: 58 kg

DRUGS (16)
  1. CAMPATH [Suspect]
     Indication: LYMPHOHISTIOCYTOSIS
     Dosage: 30 MG, TIW
     Route: 065
     Dates: start: 20100505, end: 20100619
  2. FOLIC ACID [Concomitant]
     Indication: PRODUCT USED FOR UNKNOWN INDICATION
     Dosage: UNK
     Route: 065
  3. CYCLOSPORINE [Suspect]
     Indication: LYMPHOHISTIOCYTOSIS
     Dosage: 200 MG, BID
     Route: 048
     Dates: start: 20100409, end: 20100415
  4. CAMPATH [Suspect]
     Dosage: 10 MG, ONCE
     Route: 065
     Dates: start: 20100503, end: 20100503
  5. SULFAMETHOXAZOLE AND TRIMETHOPRIM [Concomitant]
     Indication: INFECTION PROPHYLAXIS
     Dosage: UNK
     Route: 065
  6. NEUPOGEN [Concomitant]
     Indication: NEUTROPENIA
     Dosage: UNK
     Route: 065
  7. LAMIVUDINE [Concomitant]
     Indication: ANTIVIRAL PROPHYLAXIS
     Dosage: UNK
     Route: 065
  8. GANCICLOVIR [Concomitant]
     Indication: ANTIVIRAL PROPHYLAXIS
     Dosage: UNK
     Route: 065
  9. ETOPOSIDE [Suspect]
     Dosage: 65 MG, ONCE
     Route: 042
     Dates: start: 20100423, end: 20100423
  10. ETOPOSIDE [Suspect]
     Dosage: 65 MG, ONCE
     Route: 042
     Dates: start: 20100428, end: 20100428
  11. ETOPOSIDE [Suspect]
     Dosage: 65 MG, ONCE
     Route: 042
     Dates: start: 20100430, end: 20100430
  12. FERROUS SULFATE TAB [Concomitant]
     Indication: PRODUCT USED FOR UNKNOWN INDICATION
     Dosage: UNK
     Route: 065
  13. VANCOMYCIN [Concomitant]
     Indication: ENTEROCOCCAL BACTERAEMIA
     Dosage: UNK
     Route: 065
  14. ETOPOSIDE [Suspect]
     Indication: LYMPHOHISTIOCYTOSIS
     Dosage: 140 MG, ONCE
     Route: 042
     Dates: start: 20100409, end: 20100409
  15. SILDENAFIL CITRATE [Concomitant]
     Indication: PRODUCT USED FOR UNKNOWN INDICATION
     Dosage: UNK
     Route: 065
  16. IMMUNE GLOBULIN NOS [Concomitant]
     Indication: PRODUCT USED FOR UNKNOWN INDICATION
     Dosage: UNK
     Route: 065

REACTIONS (2)
  - COLITIS EROSIVE [None]
  - SEPSIS [None]
